FAERS Safety Report 5014421-X (Version None)
Quarter: 2006Q2

REPORT INFORMATION
  Report Type: 
  Country: None (occurrence: None)
  Receive Date: 20060531
  Receipt Date: 20060405
  Transmission Date: 20061013
  Serious: Yes (Hospitalization)
  Sender: FDA-Public Use
  Company Number: PHBS2006ZA05237

PATIENT
  Age: 7 Year
  Sex: Female

DRUGS (2)
  1. TEGRETOL [Suspect]
     Indication: CONVULSION
     Route: 065
     Dates: start: 20060219, end: 20060313
  2. EPILIM [Concomitant]
     Indication: CONVULSION
     Route: 065

REACTIONS (5)
  - ABASIA [None]
  - COORDINATION ABNORMAL [None]
  - HALLUCINATION [None]
  - SKIN REACTION [None]
  - STEVENS-JOHNSON SYNDROME [None]
